FAERS Safety Report 6817640-2 (Version None)
Quarter: 2010Q3

REPORT INFORMATION
  Report Type: 
  Country: None (occurrence: None)
  Receive Date: 20100706
  Receipt Date: 20100625
  Transmission Date: 20110219
  Serious: Yes (Hospitalization, Other)
  Sender: FDA-Public Use
  Company Number: US-ASTRAZENECA-2010SE19695

PATIENT
  Age: 43 Year
  Sex: Female

DRUGS (13)
  1. NEXIUM [Suspect]
     Indication: GASTROOESOPHAGEAL REFLUX DISEASE
     Route: 048
     Dates: start: 19910101
  2. PRILOSEC [Suspect]
     Indication: GASTROOESOPHAGEAL REFLUX DISEASE
     Dosage: DAILY
     Route: 048
     Dates: end: 19910101
  3. SINGULAIR [Concomitant]
  4. ZYRTEC [Concomitant]
  5. PAIN MED [Concomitant]
  6. THEO-DUR [Concomitant]
  7. WELLBUTRIN [Concomitant]
     Dosage: 200 MG Q AM/PM
  8. TOVIAZ [Concomitant]
  9. FOSAMAX [Concomitant]
     Dosage: 7 IQ/W
  10. ZOFRAN [Concomitant]
     Dosage: N/V
  11. OXYCODONE HCL [Concomitant]
     Dosage: 5 MG Q 6-8 H PRN
  12. TUMS [Concomitant]
     Dosage: 750 TID
  13. ALBUTEROL SULATE [Concomitant]
     Dosage: PRN

REACTIONS (48)
  - ANAEMIA [None]
  - ARTHRALGIA [None]
  - ASTHENIA [None]
  - ASTHMA [None]
  - BACK PAIN [None]
  - CHEST PAIN [None]
  - CHILLS [None]
  - COLOSTOMY [None]
  - COMPRESSION FRACTURE [None]
  - CONTUSION [None]
  - DEHYDRATION [None]
  - DEVICE RELATED INFECTION [None]
  - DIZZINESS [None]
  - DRUG INEFFECTIVE [None]
  - DYSPNOEA [None]
  - ENTEROVESICAL FISTULA [None]
  - FOREARM FRACTURE [None]
  - GASTROOESOPHAGEAL REFLUX DISEASE [None]
  - HAEMORRHAGE [None]
  - HERPES ZOSTER [None]
  - HYPOKALAEMIA [None]
  - HYPOMAGNESAEMIA [None]
  - ILL-DEFINED DISORDER [None]
  - INCORRECT DOSE ADMINISTERED [None]
  - INTESTINAL OBSTRUCTION [None]
  - LETHARGY [None]
  - MALABSORPTION [None]
  - NAUSEA [None]
  - NEUROPATHY PERIPHERAL [None]
  - OSTEOMYELITIS [None]
  - OSTEOPOROSIS [None]
  - OVARIAN CANCER RECURRENT [None]
  - PAIN IN EXTREMITY [None]
  - PERIPHERAL EMBOLISM [None]
  - PNEUMONIA [None]
  - PNEUMOTHORAX TRAUMATIC [None]
  - POST PROCEDURAL SEPSIS [None]
  - PYREXIA [None]
  - SEPSIS [None]
  - STAPHYLOCOCCAL INFECTION [None]
  - TELANGIECTASIA [None]
  - THROAT IRRITATION [None]
  - THROMBOSIS [None]
  - ULCER [None]
  - ULNA FRACTURE [None]
  - URINARY TRACT INFECTION [None]
  - VOMITING [None]
  - WEIGHT DECREASED [None]
